FAERS Safety Report 9311704 (Version 4)
Quarter: 2016Q4

REPORT INFORMATION
  Report Type: Report from Study
  Country: BR (occurrence: BR)
  Receive Date: 20130528
  Receipt Date: 20161223
  Transmission Date: 20170207
  Serious: Yes (Other)
  Sender: FDA-Public Use
  Company Number: BR-ROCHE-1227825

PATIENT
  Sex: Female
  Weight: 80 kg

DRUGS (15)
  1. MABTHERA [Suspect]
     Active Substance: RITUXIMAB
     Route: 042
     Dates: start: 201501
  2. MABTHERA [Suspect]
     Active Substance: RITUXIMAB
     Indication: RHEUMATOID ARTHRITIS
     Route: 042
     Dates: start: 20130115
  3. PREDNISONE. [Suspect]
     Active Substance: PREDNISONE
     Indication: FLUID RETENTION
  4. OMEPRAZOLE. [Concomitant]
     Active Substance: OMEPRAZOLE
  5. OMEPRAZOLE. [Concomitant]
     Active Substance: OMEPRAZOLE
     Indication: LIVER DISORDER
  6. OMEGA 3 [Concomitant]
     Active Substance: OMEGA-3 FATTY ACIDS
  7. PILOCARPINE. [Concomitant]
     Active Substance: PILOCARPINE
  8. VERTIGIUM [Concomitant]
     Active Substance: FLUNARIZINE HYDROCHLORIDE
     Indication: DIZZINESS
  9. MABTHERA [Suspect]
     Active Substance: RITUXIMAB
     Route: 042
     Dates: start: 201308
  10. PREDNISONE. [Suspect]
     Active Substance: PREDNISONE
     Indication: PAIN
     Route: 065
  11. LOSARTAN. [Concomitant]
     Active Substance: LOSARTAN
  12. ATROVENT [Concomitant]
     Active Substance: IPRATROPIUM BROMIDE
     Indication: BRONCHITIS
     Route: 065
  13. MABTHERA [Suspect]
     Active Substance: RITUXIMAB
     Route: 042
     Dates: start: 201404
  14. BEROTEC [Concomitant]
     Active Substance: FENOTEROL HYDROBROMIDE
     Indication: BRONCHITIS
     Route: 065
  15. LIPITOR [Concomitant]
     Active Substance: ATORVASTATIN CALCIUM
     Indication: BLOOD CHOLESTEROL ABNORMAL

REACTIONS (17)
  - Bronchitis [Not Recovered/Not Resolved]
  - Cataract [Unknown]
  - Renal pain [Not Recovered/Not Resolved]
  - Hepatic neoplasm [Unknown]
  - Pain in extremity [Unknown]
  - Joint swelling [Unknown]
  - Blindness [Unknown]
  - Peripheral swelling [Unknown]
  - Abdominal pain upper [Not Recovered/Not Resolved]
  - Gastric disorder [Unknown]
  - Conjunctivitis [Recovering/Resolving]
  - Dyspnoea [Recovered/Resolved]
  - Lung disorder [Unknown]
  - Hypertension [Not Recovered/Not Resolved]
  - Wheezing [Unknown]
  - Arthralgia [Unknown]
  - Lacrimation decreased [Unknown]

NARRATIVE: CASE EVENT DATE: 2014
